FAERS Safety Report 19929170 (Version 1)
Quarter: 2021Q4

REPORT INFORMATION
  Report Type: Spontaneous
  Country: DE (occurrence: JP)
  Receive Date: 20211007
  Receipt Date: 20211007
  Transmission Date: 20220303
  Serious: Yes (Death, Other)
  Sender: FDA-Public Use
  Company Number: JP-MERCK HEALTHCARE KGAA-9268952

PATIENT
  Age: 61 Year
  Sex: Male

DRUGS (2)
  1. ERBITUX [Suspect]
     Active Substance: CETUXIMAB
     Indication: Malignant palate neoplasm
     Dosage: UNK UNK, UNKNOWN
     Route: 041
  2. PACLITAXEL [Concomitant]
     Active Substance: PACLITAXEL
     Indication: Malignant palate neoplasm
     Dosage: UNK, UNKNOWN
     Route: 065

REACTIONS (4)
  - Death [Fatal]
  - Lung cyst [Unknown]
  - Pneumothorax [Unknown]
  - Off label use [Unknown]
